FAERS Safety Report 5689501-6 (Version None)
Quarter: 2008Q1

REPORT INFORMATION
  Report Type: 
  Country: None (occurrence: None)
  Receive Date: 20080331
  Receipt Date: 20080320
  Transmission Date: 20080703
  Serious: Yes (Hospitalization, Other)
  Sender: FDA-Public Use
  Company Number: BE-PFIZER INC-2008025550

PATIENT
  Sex: Female

DRUGS (2)
  1. SERLAIN [Suspect]
     Indication: ANXIETY DISORDER
  2. IMURAN [Concomitant]

REACTIONS (1)
  - ABORTION SPONTANEOUS [None]
